FAERS Safety Report 4989009-7 (Version None)
Quarter: 2006Q2

REPORT INFORMATION
  Report Type: 
  Country: None (occurrence: None)
  Receive Date: 20060425
  Receipt Date: 20060413
  Transmission Date: 20061013
  Serious: Yes (Hospitalization)
  Sender: FDA-Public Use
  Company Number: FR9143314AUG2002

PATIENT
  Age: 48 Year
  Sex: Male

DRUGS (5)
  1. RAPAMUNE [Suspect]
     Indication: RENAL TRANSPLANT
     Dosage: FROM 5 TO 15 MG DAILY
     Route: 048
     Dates: start: 20020706
  2. CELLCEPT [Suspect]
     Indication: RENAL TRANSPLANT
     Dosage: 2 G OR 1 G DAILY
     Route: 048
     Dates: start: 20020705
  3. SOLU-MEDROL [Concomitant]
  4. PREDNISONE TAB [Concomitant]
  5. THYMOGLOBULIN [Concomitant]

REACTIONS (20)
  - BLADDER DISTENSION [None]
  - C-REACTIVE PROTEIN INCREASED [None]
  - DEHYDRATION [None]
  - DIARRHOEA [None]
  - DYSURIA [None]
  - FLUID RETENTION [None]
  - HAEMORRHAGE [None]
  - HAEMORRHAGE URINARY TRACT [None]
  - KIDNEY TRANSPLANT REJECTION [None]
  - MICROCYTIC ANAEMIA [None]
  - PROSTATIC OBSTRUCTION [None]
  - PROSTATISM [None]
  - PYREXIA [None]
  - RENAL IMPAIRMENT [None]
  - RENAL TUBULAR NECROSIS [None]
  - SKIN INFECTION [None]
  - SODIUM RETENTION [None]
  - STAPHYLOCOCCAL INFECTION [None]
  - URINARY RETENTION [None]
  - WEIGHT DECREASED [None]
